FAERS Safety Report 11748685 (Version 2)
Quarter: 2015Q4

REPORT INFORMATION
  Report Type: Spontaneous
  Country: US (occurrence: US)
  Receive Date: 20151117
  Receipt Date: 20151207
  Transmission Date: 20160304
  Serious: No
  Sender: FDA-Public Use
  Company Number: US-AMGEN-USASP2015121936

PATIENT
  Age: 38 Year
  Sex: Male

DRUGS (1)
  1. ENBREL [Suspect]
     Active Substance: ETANERCEPT
     Indication: PSORIASIS
     Dosage: TWICE A WEEK 3-4 DAYS APART MONDAY AND THURSDAYS
     Route: 065
     Dates: start: 2014

REACTIONS (2)
  - Device issue [Unknown]
  - Underdose [Unknown]
